FAERS Safety Report 6724572-7 (Version None)
Quarter: 2010Q2

REPORT INFORMATION
  Report Type: 
  Country: None (occurrence: None)
  Receive Date: 20100513
  Receipt Date: 20100430
  Transmission Date: 20101027
  Serious: Yes (Other)
  Sender: FDA-Public Use
  Company Number: US-PFIZER INC-2010030354

PATIENT
  Age: 32 Year
  Sex: Female

DRUGS (3)
  1. GEODON [Suspect]
     Dosage: UNK
  2. ILOPERIDONE [Suspect]
     Indication: BIPOLAR I DISORDER
     Dosage: 1 MG, 2X/DAY
     Dates: start: 20100209
  3. SEROQUEL [Suspect]
     Dosage: UNK

REACTIONS (1)
  - SEDATION [None]
